FAERS Safety Report 6990392-1 (Version None)
Quarter: 2010Q3

REPORT INFORMATION
  Report Type: 
  Country: None (occurrence: None)
  Receive Date: 20100916
  Receipt Date: 20100618
  Transmission Date: 20110219
  Serious: Yes (Other)
  Sender: FDA-Public Use
  Company Number: US-PFIZER INC-2010041253

PATIENT
  Age: 45 Year
  Sex: Female

DRUGS (4)
  1. LYRICA [Suspect]
     Indication: PAIN
     Dosage: 50MG DAILY
     Dates: start: 20090101
  2. NEURONTIN [Suspect]
     Indication: ANALGESIC THERAPY
     Dosage: 300 MG, 2X/DAY
     Route: 048
     Dates: start: 20100301
  3. ABILIFY [Suspect]
     Dosage: UNK
  4. VALIUM [Concomitant]
     Dosage: UNK

REACTIONS (9)
  - DEHYDRATION [None]
  - DRUG INEFFECTIVE [None]
  - HYPERHIDROSIS [None]
  - LIVER DISORDER [None]
  - MULTIPLE SCLEROSIS RELAPSE [None]
  - ROSACEA [None]
  - TEMPERATURE INTOLERANCE [None]
  - THIRST [None]
  - WEIGHT INCREASED [None]
